FAERS Safety Report 5039329-5 (Version None)
Quarter: 2006Q2

REPORT INFORMATION
  Report Type: 
  Country: None (occurrence: None)
  Receive Date: 20060629
  Receipt Date: 20060619
  Transmission Date: 20061013
  Serious: Yes (Hospitalization)
  Sender: FDA-Public Use
  Company Number: US-JNJFOC-20060605389

PATIENT
  Sex: Female

DRUGS (3)
  1. DURAGESIC-100 [Suspect]
     Indication: PAIN
     Route: 062
  2. EFFEXOR [Concomitant]
     Route: 048
  3. HYOSCYAMINE [Concomitant]
     Indication: BLADDER DISORDER
     Route: 048

REACTIONS (6)
  - ARTHROPATHY [None]
  - BACK DISORDER [None]
  - CONDITION AGGRAVATED [None]
  - MUSCLE SPASMS [None]
  - STOMACH DISCOMFORT [None]
  - WEIGHT DECREASED [None]
